FAERS Safety Report 6264472-2 (Version None)
Quarter: 2009Q3

REPORT INFORMATION
  Report Type: 
  Country: None (occurrence: None)
  Receive Date: 20090708
  Receipt Date: 20090626
  Transmission Date: 20100115
  Serious: Yes (Disabling)
  Sender: FDA-Public Use
  Company Number: OSCN-NO-0902S-0107

PATIENT
  Age: 37 Year
  Sex: Female

DRUGS (11)
  1. OMNISCAN [Suspect]
     Indication: DRUG USE FOR UNKNOWN INDICATION
     Dosage: 40 ML, SINGLE DOSE, I.V.
     Route: 042
     Dates: start: 20050707, end: 20050707
  2. ERYTHROPOIETIN (NEORECORMON) [Concomitant]
  3. RAPAMUNE [Concomitant]
  4. PREDNISOLONE [Concomitant]
  5. METOPROLOL SUCCINATE (SELO-ZOK) [Concomitant]
  6. FUROSEMIDE [Concomitant]
  7. POTASSIUM CHLORIDE (KALEORID) [Concomitant]
  8. ACETYLSALICYLIC ACID (HJERTEMAGNYL) [Concomitant]
  9. INSULIN HUMAN (ACTRAPID) [Concomitant]
  10. INSULIN HUMAN (INSULATARD) [Concomitant]
  11. NORVASC [Concomitant]

REACTIONS (1)
  - NEPHROGENIC SYSTEMIC FIBROSIS [None]
